FAERS Safety Report 7942746-4 (Version None)
Quarter: 2011Q4

REPORT INFORMATION
  Report Type: 
  Country: None (occurrence: None)
  Receive Date: 20111114
  Receipt Date: 20110114
  Transmission Date: 20120403
  Serious: Yes (Other)
  Sender: FDA-Public Use
  Company Number: 2011S1000038

PATIENT
  Age: 74 Year
  Sex: Female

DRUGS (4)
  1. METOPROLOL TARTRATE [Concomitant]
  2. OMEPRAZOLE [Concomitant]
  3. LIPITOR [Concomitant]
  4. CUBICIN [Suspect]
     Dosage: 6 MG/KG;Q48H;IV
     Route: 042
     Dates: start: 20101229, end: 20110105

REACTIONS (1)
  - EOSINOPHILIC PNEUMONIA [None]
